FAERS Safety Report 24288830 (Version 1)
Quarter: 2024Q3

REPORT INFORMATION
  Report Type: Report from Study
  Country: CA (occurrence: CA)
  Receive Date: 20240906
  Receipt Date: 20240906
  Transmission Date: 20241017
  Serious: Yes (Other)
  Sender: ABBVIE
  Company Number: CA-ABBVIE-5904126

PATIENT
  Age: 82 Year
  Sex: Female

DRUGS (1)
  1. VIBERZI [Suspect]
     Active Substance: ELUXADOLINE
     Indication: Irritable bowel syndrome
     Dosage: FORM STRENGTH : ELUXADOLINE 100MG TAB
     Route: 048
     Dates: start: 20231027

REACTIONS (1)
  - Weight increased [Unknown]
